FAERS Safety Report 10544856 (Version 2)
Quarter: 2014Q4

REPORT INFORMATION
  Report Type: Spontaneous
  Country: TW (occurrence: TW)
  Receive Date: 20141027
  Receipt Date: 20141113
  Transmission Date: 20150529
  Serious: Yes (Hospitalization, Other)
  Sender: FDA-Public Use
  Company Number: PHHY2014TW139308

PATIENT
  Age: 67 Year
  Sex: Female
  Weight: 42 kg

DRUGS (2)
  1. EXELON [Suspect]
     Active Substance: RIVASTIGMINE TARTRATE
     Indication: DEMENTIA
     Dosage: 1.5 MG, BID
     Route: 048
     Dates: start: 20140915, end: 20141026
  2. CLOZARIL [Suspect]
     Active Substance: CLOZAPINE
     Indication: SCHIZOAFFECTIVE DISORDER BIPOLAR TYPE
     Dosage: 200 MG, QD
     Route: 065

REACTIONS (2)
  - Hemiplegia [Recovering/Resolving]
  - Pleurothotonus [Recovering/Resolving]

NARRATIVE: CASE EVENT DATE: 20141026
